FAERS Safety Report 18927776 (Version 1)
Quarter: 2021Q1

REPORT INFORMATION
  Report Type: Spontaneous
  Country: DE (occurrence: DE)
  Receive Date: 20210223
  Receipt Date: 20210223
  Transmission Date: 20210420
  Serious: Yes (Disabling)
  Sender: FDA-Public Use
  Company Number: NVSC2020DE325607

PATIENT
  Age: 58 Year
  Sex: Male

DRUGS (3)
  1. VALSARTAN DURA [Concomitant]
     Active Substance: VALSARTAN
     Indication: PRODUCT USED FOR UNKNOWN INDICATION
     Dosage: 160 MG
     Route: 065
     Dates: start: 20160509, end: 201807
  2. VALSARTAN ? 1 A PHARMA [Suspect]
     Active Substance: VALSARTAN
     Indication: HYPERTENSION
     Dosage: 160 MG
     Route: 065
     Dates: start: 20160509, end: 201807
  3. DIOVAN [Suspect]
     Active Substance: VALSARTAN
     Indication: HYPERTENSION
     Dosage: 160 MG
     Route: 065
     Dates: start: 201507

REACTIONS (15)
  - Cerebrovascular accident [Unknown]
  - Fatigue [Unknown]
  - Diabetic retinopathy [Unknown]
  - Cystoid macular oedema [Unknown]
  - Cerebral ischaemia [Unknown]
  - Hemianopia homonymous [Unknown]
  - Mental disorder [Unknown]
  - General physical health deterioration [Not Recovered/Not Resolved]
  - Type 2 diabetes mellitus [Unknown]
  - Emotional distress [Unknown]
  - Cerebral infarction [Unknown]
  - Depression [Unknown]
  - Visual impairment [Unknown]
  - Disturbance in attention [Unknown]
  - Fear [Unknown]

NARRATIVE: CASE EVENT DATE: 2017
